FAERS Safety Report 10696624 (Version 1)
Quarter: 2015Q1

REPORT INFORMATION
  Report Type: Spontaneous
  Country: US (occurrence: US)
  Receive Date: 20150107
  Receipt Date: 20150107
  Transmission Date: 20150721
  Serious: No
  Sender: FDA-Public Use
  Company Number: US-BRISTOL-MYERS SQUIBB COMPANY-BMS-2014-003652

PATIENT
  Age: 55 Year
  Sex: Female

DRUGS (2)
  1. BYDUREON [Suspect]
     Active Substance: EXENATIDE
     Indication: TYPE 2 DIABETES MELLITUS
     Dosage: 2 MG, QWK
     Route: 058
  2. AMARYL [Concomitant]
     Active Substance: GLIMEPIRIDE
     Route: 065

REACTIONS (3)
  - Rash [Recovered/Resolved]
  - Vomiting [Unknown]
  - Nausea [Unknown]
